FAERS Safety Report 6657952-9 (Version None)
Quarter: 2010Q1

REPORT INFORMATION
  Report Type: 
  Country: None (occurrence: None)
  Receive Date: 20100330
  Receipt Date: 20100319
  Transmission Date: 20100710
  Serious: Yes (Other)
  Sender: FDA-Public Use
  Company Number: JP-ROCHE-693593

PATIENT
  Sex: Female

DRUGS (8)
  1. TOCILIZUMAB [Suspect]
     Indication: RHEUMATOID ARTHRITIS
     Route: 041
     Dates: start: 20090527, end: 20090527
  2. TOCILIZUMAB [Suspect]
     Route: 041
     Dates: start: 20090624, end: 20090624
  3. TOCILIZUMAB [Suspect]
     Route: 041
     Dates: start: 20090722, end: 20090722
  4. TOCILIZUMAB [Suspect]
     Route: 041
     Dates: start: 20090819, end: 20090819
  5. TOCILIZUMAB [Suspect]
     Route: 041
     Dates: start: 20090916, end: 20090916
  6. TOCILIZUMAB [Suspect]
     Route: 041
     Dates: start: 20091014, end: 20091014
  7. LOXONIN [Concomitant]
     Route: 048
     Dates: end: 20090819
  8. ALENDRONATE SODIUM [Concomitant]
     Route: 048

REACTIONS (1)
  - TRANSIENT GLOBAL AMNESIA [None]
